FAERS Safety Report 6472711-8 (Version None)
Quarter: 2009Q4

REPORT INFORMATION
  Report Type: 
  Country: None (occurrence: None)
  Receive Date: 20091203
  Receipt Date: 20081213
  Transmission Date: 20100525
  Serious: No
  Sender: FDA-Public Use
  Company Number: US-AMGEN-KDL323845

PATIENT
  Sex: Female

DRUGS (9)
  1. ENBREL [Suspect]
     Indication: SPONDYLOARTHROPATHY
     Route: 058
     Dates: start: 20021216
  2. TOLECTIN [Suspect]
     Dates: start: 20070702
  3. METHOTREXATE [Concomitant]
     Route: 048
     Dates: start: 20070701
  4. ELAVIL [Concomitant]
  5. CYMBALTA [Concomitant]
  6. AMBIEN [Concomitant]
  7. XANAX [Concomitant]
  8. VICODIN ES [Concomitant]
  9. FOLIC ACID [Concomitant]

REACTIONS (10)
  - ALOPECIA [None]
  - BACK PAIN [None]
  - CONTUSION [None]
  - INFLAMMATION [None]
  - INJECTION SITE HAEMATOMA [None]
  - MUSCLE SPASMS [None]
  - MUSCULOSKELETAL STIFFNESS [None]
  - NAUSEA [None]
  - PAIN [None]
  - PAIN IN EXTREMITY [None]
